FAERS Safety Report 7422163-6 (Version None)
Quarter: 2011Q2

REPORT INFORMATION
  Report Type: 
  Country: None (occurrence: None)
  Receive Date: 20110418
  Receipt Date: 20110304
  Transmission Date: 20111010
  Serious: Yes (Hospitalization)
  Sender: FDA-Public Use
  Company Number: US-BAYER-201036684NA

PATIENT
  Age: 36 Year
  Sex: Female
  Weight: 74.83 kg

DRUGS (8)
  1. YAZ [Suspect]
     Indication: ACNE
     Dosage: UNK
     Dates: start: 20080711, end: 20090711
  2. PREVACID [Concomitant]
  3. ZOFRAN [Concomitant]
  4. YASMIN [Suspect]
     Indication: ACNE
  5. PERCOCET [Concomitant]
  6. CIPRO [Concomitant]
  7. OCELLA [Suspect]
     Indication: ACNE
  8. ZITHROMAX [Concomitant]

REACTIONS (8)
  - CHOLECYSTITIS ACUTE [None]
  - GALLBLADDER DISORDER [None]
  - DEHYDRATION [None]
  - CHOLELITHIASIS [None]
  - INJURY [None]
  - BILE DUCT STONE [None]
  - PANCREATITIS [None]
  - MYALGIA [None]
